FAERS Safety Report 6213173-5 (Version None)
Quarter: 2009Q2

REPORT INFORMATION
  Report Type: 
  Country: None (occurrence: None)
  Receive Date: 20090602
  Receipt Date: 20090602
  Transmission Date: 20091009
  Serious: Yes (Other)
  Sender: FDA-Public Use
  Company Number: None

PATIENT
  Sex: Male
  Weight: 77.1115 kg

DRUGS (1)
  1. ACYCLOVIR [Suspect]
     Indication: HERPES ZOSTER
     Dosage: 5 TABLETS 4 TIMES A DAY PO
     Route: 048
     Dates: start: 20090523, end: 20090601

REACTIONS (2)
  - BURNING SENSATION [None]
  - THROMBOSIS [None]
